FAERS Safety Report 4427801-8 (Version None)
Quarter: 2004Q3

REPORT INFORMATION
  Report Type: 
  Country: None (occurrence: None)
  Receive Date: 20040816
  Receipt Date: 20040816
  Transmission Date: 20050211
  Serious: Yes (Hospitalization)
  Sender: FDA-Public Use
  Company Number: None

PATIENT
  Age: 20 Year
  Sex: Male

DRUGS (1)
  1. NAPROXEN [Suspect]
     Dosage: 500MG BID ORAL
     Route: 048
     Dates: start: 20040812, end: 20040812

REACTIONS (1)
  - ANGIONEUROTIC OEDEMA [None]
